FAERS Safety Report 12653273 (Version 1)
Quarter: 2016Q3

REPORT INFORMATION
  Report Type: Spontaneous
  Country: GB (occurrence: GB)
  Receive Date: 20160815
  Receipt Date: 20160815
  Transmission Date: 20161109
  Serious: Yes (Other)
  Sender: FDA-Public Use
  Company Number: GB-TEVA-683080ACC

PATIENT
  Age: 76 Year
  Sex: Male
  Weight: 69.9 kg

DRUGS (1)
  1. TRIMETHOPRIM. [Suspect]
     Active Substance: TRIMETHOPRIM
     Dosage: 600 MILLIGRAM DAILY;

REACTIONS (1)
  - Furuncle [Not Recovered/Not Resolved]
